FAERS Safety Report 4431810-2 (Version None)
Quarter: 2004Q3

REPORT INFORMATION
  Report Type: 
  Country: None (occurrence: None)
  Receive Date: 20040819
  Receipt Date: 20040803
  Transmission Date: 20050211
  Serious: Yes (Hospitalization)
  Sender: FDA-Public Use
  Company Number: 104927ISR

PATIENT
  Age: 64 Year
  Sex: Female

DRUGS (4)
  1. FLUOROURACIL [Suspect]
     Indication: BREAST CANCER
     Dosage: NI; NI
     Dates: start: 20040407
  2. CYCLOPHOSPHAMIDE [Suspect]
     Indication: BREAST CANCER
     Dosage: NI; INTRAVENOUS (NOS)
     Route: 042
     Dates: start: 20040407, end: 20040410
  3. EPIRUBICIN [Suspect]
     Indication: BREAST CANCER
     Dosage: NI; INTRAVENOUS NOS
     Route: 042
     Dates: start: 20040407
  4. METHYLPREDNISOLONE [Suspect]
     Indication: BREAST CANCER
     Dosage: NI, INTRAVENOUS (NOS)
     Route: 042
     Dates: start: 20040407

REACTIONS (2)
  - PYOMYOSITIS [None]
  - STAPHYLOCOCCAL INFECTION [None]
